FAERS Safety Report 5584526-3 (Version None)
Quarter: 2008Q1

REPORT INFORMATION
  Report Type: 
  Country: None (occurrence: None)
  Receive Date: 20080108
  Receipt Date: 20071228
  Transmission Date: 20080703
  Serious: Yes (Hospitalization)
  Sender: FDA-Public Use
  Company Number: US-ELI_LILLY_AND_COMPANY-US200712005329

PATIENT
  Sex: Female

DRUGS (2)
  1. HUMATROPE [Suspect]
     Indication: TURNER'S SYNDROME
     Dosage: UNK, UNKNOWN
     Dates: start: 20050809, end: 20070731
  2. HUMATROPE [Suspect]
     Dosage: UNK, UNKNOWN
     Dates: start: 20071217

REACTIONS (3)
  - CYST [None]
  - HEPATIC ENZYME ABNORMAL [None]
  - HEPATIC NEOPLASM [None]
